FAERS Safety Report 6725356-6 (Version None)
Quarter: 2010Q2

REPORT INFORMATION
  Report Type: 
  Country: None (occurrence: None)
  Receive Date: 20100514
  Receipt Date: 20100504
  Transmission Date: 20101027
  Serious: Yes (Hospitalization)
  Sender: FDA-Public Use
  Company Number: SE-BRISTOL-MYERS SQUIBB COMPANY-15101926

PATIENT
  Age: 75 Year
  Sex: Female

DRUGS (8)
  1. METFORMIN HCL [Suspect]
     Indication: DIABETES MELLITUS
     Route: 048
     Dates: end: 20100111
  2. EMCONCOR [Suspect]
     Indication: CARDIAC DISORDER
     Dosage: INTERRUPTED ON 11JAN10 RESTARTED IN 2010 AT 2.5 MG  5 MG FILM COATED TABLETS
     Route: 048
  3. COZAAR [Suspect]
     Indication: ESSENTIAL HYPERTENSION
     Dosage: 1 DF= 100MG/25 MG
     Route: 048
     Dates: end: 20100111
  4. STALEVO 100 [Concomitant]
     Dosage: 1 DF= 50 MG/12.5 MG/200 MG;FILM COATED TABLETS
  5. MIRTAZAPINE [Concomitant]
  6. LOCOID [Concomitant]
     Dosage: STRENGTH: 0.1 PERCENT;FORM: CUTANEOUS SOLUTION
  7. OXASCAND [Concomitant]
     Dosage: 1 DF= 5 MG TAB
  8. TROMBYL [Concomitant]
     Dosage: 75 MG TAB

REACTIONS (4)
  - CONSTIPATION [None]
  - GENERAL PHYSICAL HEALTH DETERIORATION [None]
  - HYPOTENSION [None]
  - VOMITING [None]
